FAERS Safety Report 12400179 (Version 1)
Quarter: 2016Q2

REPORT INFORMATION
  Report Type: Spontaneous
  Country: US (occurrence: None)
  Receive Date: 20160524
  Receipt Date: 20160524
  Transmission Date: 20160815
  Serious: No
  Sender: FDA-Public Use
  Company Number: None

PATIENT
  Age: 12 Year
  Sex: Male
  Weight: 61.87 kg

DRUGS (1)
  1. QUANFACINE ER 3MG [Suspect]
     Active Substance: GUANFACINE
     Indication: ATTENTION DEFICIT/HYPERACTIVITY DISORDER
     Dosage: 1 QAM ORAL
     Route: 048
     Dates: start: 20141216, end: 20150312

REACTIONS (3)
  - Product substitution issue [None]
  - Defiant behaviour [None]
  - Drug ineffective [None]
